FAERS Safety Report 8203228-8 (Version None)
Quarter: 2012Q1

REPORT INFORMATION
  Report Type: 
  Country: None (occurrence: None)
  Receive Date: 20120312
  Receipt Date: 20120229
  Transmission Date: 20120608
  Serious: Yes (Other)
  Sender: FDA-Public Use
  Company Number: JP-ROCHE-1045427

PATIENT
  Age: 7 Decade
  Sex: Female

DRUGS (3)
  1. CISPLATIN [Suspect]
     Indication: GASTRIC CANCER
     Dosage: UNCERTAIN DOSAGE AND SEVEN COURSE ENFORCEMENT
     Route: 042
  2. HERCEPTIN [Suspect]
     Indication: GASTRIC CANCER
     Dosage: DOSAGE IS UNCERTAIN.
     Route: 041
  3. XELODA [Suspect]
     Indication: GASTRIC CANCER
     Dosage: UNCERTAIN DOSAGE AND SEVEN COURSE ENFORCEMENT.
     Route: 048

REACTIONS (2)
  - HYPOCALCAEMIA [None]
  - HYPOMAGNESAEMIA [None]
